FAERS Safety Report 20301633 (Version 1)
Quarter: 2022Q1

REPORT INFORMATION
  Report Type: Report from Study
  Country: US (occurrence: None)
  Receive Date: 20220105
  Receipt Date: 20220105
  Transmission Date: 20220424
  Serious: Yes (Hospitalization)
  Sender: FDA-Public Use
  Company Number: US-Eisai Medical Research-EC-2021-106018

PATIENT
  Age: 62 Year
  Sex: Female

DRUGS (1)
  1. LENVIMA [Suspect]
     Active Substance: LENVATINIB
     Indication: Product used for unknown indication
     Route: 048
     Dates: start: 20211218, end: 20211220

REACTIONS (4)
  - Blood pressure increased [Recovering/Resolving]
  - Anaemia [Unknown]
  - Renal disorder [Unknown]
  - Pain [Unknown]

NARRATIVE: CASE EVENT DATE: 20211220
